FAERS Safety Report 16041960 (Version 1)
Quarter: 2019Q1

REPORT INFORMATION
  Report Type: Spontaneous
  Country: US (occurrence: US)
  Receive Date: 20190306
  Receipt Date: 20190306
  Transmission Date: 20190418
  Serious: No
  Sender: FDA-Public Use
  Company Number: US-AKORN PHARMACEUTICALS-2018AKN00772

PATIENT
  Age: 13 Year
  Sex: Male
  Weight: 65.76 kg

DRUGS (4)
  1. MYORISAN [Suspect]
     Active Substance: ISOTRETINOIN
     Indication: ACNE
     Dosage: 40 MG, 1X/DAY
     Dates: start: 201803, end: 20180412
  2. MYORISAN [Suspect]
     Active Substance: ISOTRETINOIN
     Dosage: 80 MG, 1X/DAY
     Dates: start: 20180413, end: 2018
  3. MYORISAN [Suspect]
     Active Substance: ISOTRETINOIN
     Dosage: UNK, EVERY 48 HOURS
     Dates: start: 2018, end: 2018
  4. MYORISAN [Suspect]
     Active Substance: ISOTRETINOIN
     Dosage: 40 MG, 1X/DAY
     Dates: start: 2018, end: 2018

REACTIONS (3)
  - Cheilitis [Unknown]
  - Arthralgia [Recovered/Resolved]
  - Xerosis [Unknown]

NARRATIVE: CASE EVENT DATE: 201803
